FAERS Safety Report 10048152 (Version 5)
Quarter: 2015Q4

REPORT INFORMATION
  Report Type: Report from Study
  Country: US (occurrence: US)
  Receive Date: 20140331
  Receipt Date: 20151125
  Transmission Date: 20160304
  Serious: Yes (Other)
  Sender: FDA-Public Use
  Company Number: US-SA-2014SA014432

PATIENT
  Age: 59 Year
  Sex: Female

DRUGS (1)
  1. AUBAGIO [Suspect]
     Active Substance: TERIFLUNOMIDE
     Indication: MULTIPLE SCLEROSIS
     Route: 048
     Dates: start: 20131017

REACTIONS (6)
  - Depression [Unknown]
  - Fall [Unknown]
  - Drug dose omission [Unknown]
  - Memory impairment [Unknown]
  - Upper limb fracture [Not Recovered/Not Resolved]
  - Peripheral coldness [Unknown]
